FAERS Safety Report 17582637 (Version 1)
Quarter: 2020Q1

REPORT INFORMATION
  Report Type: Spontaneous
  Country: FR (occurrence: FR)
  Receive Date: 20200325
  Receipt Date: 20200325
  Transmission Date: 20200409
  Serious: Yes (Hospitalization)
  Sender: FDA-Public Use
  Company Number: FR-ALLERGAN-2012815US

PATIENT
  Sex: Female
  Weight: 67 kg

DRUGS (7)
  1. PANTOPRAZOLE [Suspect]
     Active Substance: PANTOPRAZOLE
     Indication: PRODUCT USED FOR UNKNOWN INDICATION
     Dosage: 20 MG, QD
     Route: 048
     Dates: end: 20200202
  2. SIMVASTATINE [Suspect]
     Active Substance: SIMVASTATIN
     Indication: DYSLIPIDAEMIA
     Dosage: 10 MG, QD
     Route: 048
     Dates: end: 20200202
  3. RISEDRONATE SODIUM - BP [Suspect]
     Active Substance: RISEDRONATE SODIUM
     Indication: PREMATURE MENOPAUSE
     Dosage: 150 MG, Q MONTH
     Route: 048
     Dates: end: 20200130
  4. SOLIAN [Suspect]
     Active Substance: AMISULPRIDE
     Indication: DELUSIONAL DISORDER, UNSPECIFIED TYPE
     Dosage: 200 MG, QD
     Route: 048
     Dates: end: 20200202
  5. FORLAX [Suspect]
     Active Substance: POLYETHYLENE GLYCOL 4000
     Indication: PRODUCT USED FOR UNKNOWN INDICATION
     Dosage: UNK, QD
     Route: 048
  6. SPECIAFOLDINE [Suspect]
     Active Substance: FOLIC ACID
     Indication: VITAMIN SUPPLEMENTATION
     Dosage: 60 MG, Q WEEK
     Route: 048
     Dates: end: 20200202
  7. IMETH [Suspect]
     Active Substance: METHOTREXATE SODIUM
     Indication: RHEUMATOID ARTHRITIS
     Dosage: 12.5 MG, Q WEEK
     Route: 048
     Dates: end: 20200129

REACTIONS (2)
  - Confusional state [Recovering/Resolving]
  - Encephalopathy [Recovering/Resolving]

NARRATIVE: CASE EVENT DATE: 202002
